FAERS Safety Report 4959929-8 (Version None)
Quarter: 2006Q1

REPORT INFORMATION
  Report Type: 
  Country: None (occurrence: None)
  Receive Date: 20060331
  Receipt Date: 20051019
  Transmission Date: 20060701
  Serious: Yes (Hospitalization)
  Sender: FDA-Public Use
  Company Number: US-MERCK-0510USA08290

PATIENT
  Age: 55 Year
  Sex: Female
  Weight: 75 kg

DRUGS (16)
  1. VIOXX [Suspect]
     Indication: RHEUMATOID ARTHRITIS
     Route: 048
     Dates: start: 19990601, end: 20040930
  2. HYZAAR [Concomitant]
     Indication: HYPERTENSION
     Route: 048
     Dates: start: 20030101, end: 20040101
  3. ASPIRIN [Concomitant]
     Route: 048
     Dates: start: 20040801
  4. HYDRODIURIL [Concomitant]
     Route: 048
     Dates: start: 20040804, end: 20040904
  5. METOPROLOL [Concomitant]
     Indication: CHEST PAIN
     Route: 048
     Dates: start: 20020901
  6. METOPROLOL [Concomitant]
     Indication: ANGINA PECTORIS
     Route: 048
     Dates: start: 20020901
  7. BEXTRA [Concomitant]
     Indication: ARTHRITIS
     Route: 048
     Dates: start: 20011116, end: 20040801
  8. CELEBREX [Concomitant]
     Route: 048
     Dates: start: 20040601, end: 20040701
  9. GLYBURIDE [Concomitant]
     Indication: DIABETES MELLITUS
     Route: 048
     Dates: start: 19950101
  10. HYDROCHLOROTHIAZIDE [Concomitant]
     Indication: FLUID RETENTION
     Route: 048
  11. ACETAMINOPHEN AND CODEINE [Concomitant]
     Indication: ARTHRITIS
     Route: 048
  12. HUMULIN [Concomitant]
     Indication: DIABETES MELLITUS
     Route: 058
     Dates: start: 19950101
  13. AVANDIA [Concomitant]
     Indication: DIABETES MELLITUS
     Route: 048
     Dates: start: 19950101
  14. ACETAZOLAMIDE [Concomitant]
     Indication: GLAUCOMA
     Route: 048
  15. ROLAIDS [Concomitant]
     Indication: GASTROOESOPHAGEAL REFLUX DISEASE
     Route: 048
  16. FUROSEMIDE [Concomitant]
     Indication: OEDEMA
     Route: 048
     Dates: start: 19950101

REACTIONS (12)
  - ANGINA PECTORIS [None]
  - CHOLECYSTECTOMY [None]
  - EYE DISORDER [None]
  - EYE HAEMORRHAGE [None]
  - GASTROOESOPHAGEAL REFLUX DISEASE [None]
  - GLAUCOMA [None]
  - HYPERTENSION [None]
  - LIVER DISORDER [None]
  - MYOCARDIAL INFARCTION [None]
  - PANIC DISORDER [None]
  - RENAL DISORDER [None]
  - VISUAL DISTURBANCE [None]
